FAERS Safety Report 15502071 (Version 1)
Quarter: 2018Q4

REPORT INFORMATION
  Report Type: Spontaneous
  Country: US (occurrence: US)
  Receive Date: 20181015
  Receipt Date: 20181015
  Transmission Date: 20190205
  Serious: No
  Sender: FDA-Public Use
  Company Number: US-AMGEN-USASP2018100537

PATIENT
  Age: 73 Year
  Sex: Male
  Weight: 110.11 kg

DRUGS (1)
  1. KYPROLIS [Suspect]
     Active Substance: CARFILZOMIB
     Indication: PLASMA CELL MYELOMA
     Dosage: 61 MG, UNK
     Route: 065
     Dates: start: 20141021

REACTIONS (1)
  - Intercepted product preparation error [Unknown]

NARRATIVE: CASE EVENT DATE: 20180720
